FAERS Safety Report 9199261 (Version 1)
Quarter: 2013Q1

REPORT INFORMATION
  Report Type: Spontaneous
  Country: US (occurrence: US)
  Receive Date: 20130329
  Receipt Date: 20130329
  Transmission Date: 20140127
  Serious: Yes (Other)
  Sender: FDA-Public Use
  Company Number: US-PFIZER INC-2013098194

PATIENT
  Sex: 0

DRUGS (1)
  1. VORICONAZOLE [Suspect]
     Dosage: UNK

REACTIONS (6)
  - Hallucination [Unknown]
  - Vision blurred [Unknown]
  - Confusional state [Unknown]
  - Hepatic enzyme increased [Unknown]
  - Bone pain [Unknown]
  - Periostitis [Unknown]
